FAERS Safety Report 8947648 (Version 2)
Quarter: 2014Q2

REPORT INFORMATION
  Report Type: Report from Study
  Country: FR (occurrence: FR)
  Receive Date: 20121205
  Receipt Date: 20140521
  Transmission Date: 20141212
  Serious: Yes (Hospitalization)
  Sender: FDA-Public Use
  Company Number: FR-ROCHE-1162721

PATIENT
  Age: 47 Year
  Sex: Male

DRUGS (9)
  1. RITUXIMAB [Suspect]
     Indication: RHEUMATOID ARTHRITIS
     Route: 065
     Dates: start: 20070615
  2. METHOTREXATE [Concomitant]
     Route: 065
     Dates: start: 20070615
  3. METHOTREXATE [Concomitant]
     Route: 065
     Dates: start: 20111104
  4. METHOTREXATE [Concomitant]
     Route: 065
     Dates: start: 20080131
  5. CORTANCYL [Concomitant]
     Route: 065
     Dates: start: 20070615
  6. CORTANCYL [Concomitant]
     Route: 065
     Dates: start: 20111104
  7. CORTANCYL [Concomitant]
     Route: 065
     Dates: start: 20121031
  8. IMUREL [Concomitant]
     Route: 065
     Dates: start: 20080131
  9. IMUREL [Concomitant]
     Route: 065

REACTIONS (3)
  - Adenocarcinoma [Not Recovered/Not Resolved]
  - Liver function test abnormal [Unknown]
  - Asthenia [Not Recovered/Not Resolved]
